FAERS Safety Report 19657889 (Version 1)
Quarter: 2021Q3

REPORT INFORMATION
  Report Type: Spontaneous
  Country: IN (occurrence: IN)
  Receive Date: 20210804
  Receipt Date: 20210804
  Transmission Date: 20211014
  Serious: Yes (Other)
  Sender: FDA-Public Use
  Company Number: IN-ELITE LABORATORIES INC.-2021ELT00122

PATIENT
  Age: 16 Year
  Sex: Male

DRUGS (1)
  1. NALTREXONE HYDROCHLORIDE. [Suspect]
     Active Substance: NALTREXONE HYDROCHLORIDE
     Dosage: 25 MG
     Route: 048

REACTIONS (1)
  - Psychotic disorder [Recovered/Resolved]
